FAERS Safety Report 5483129-9 (Version None)
Quarter: 2007Q4

REPORT INFORMATION
  Report Type: 
  Country: None (occurrence: None)
  Receive Date: 20071005
  Receipt Date: 20070921
  Transmission Date: 20080405
  Serious: Yes (Hospitalization, Other)
  Sender: FDA-Public Use
  Company Number: A-CH2007-17511

PATIENT
  Age: 74 Year
  Sex: Male

DRUGS (8)
  1. TRACLEER [Suspect]
     Indication: PULMONARY HYPERTENSION
     Dosage: 62.5 MG, BID, ORAL
     Route: 048
     Dates: start: 20070619
  2. ACETYLSALICYLIC ACID SRT [Concomitant]
  3. CLOPIDOGREL [Concomitant]
  4. ESOMEPRAZOLE (ESOMEPRAZOLE) [Concomitant]
  5. KARVEZIDE (HYDROCHLOROTHIAZIDE, IRBESARTAN) [Concomitant]
  6. SIMVASTATIN [Concomitant]
  7. AMIODARONE HYDROCHLORIDE [Concomitant]
  8. NOVORAPID (INSULIN ASPART) [Concomitant]

REACTIONS (12)
  - CHOLELITHIASIS [None]
  - COLON ADENOMA [None]
  - COLONIC POLYP [None]
  - DIZZINESS [None]
  - DYSPLASIA [None]
  - DYSPNOEA [None]
  - GASTRITIS [None]
  - GASTROINTESTINAL HAEMORRHAGE [None]
  - HEPATIC CONGESTION [None]
  - MELAENA [None]
  - NORMOCHROMIC NORMOCYTIC ANAEMIA [None]
  - RIGHT VENTRICULAR FAILURE [None]
